FAERS Safety Report 23830673 (Version 2)
Quarter: 2024Q4

REPORT INFORMATION
  Report Type: Spontaneous
  Country: US (occurrence: US)
  Receive Date: 20240508
  Receipt Date: 20241113
  Transmission Date: 20250115
  Serious: No
  Sender: SAREPTA THERAPEUTICS
  Company Number: US-SAREPTA THERAPEUTICS INC.-SRP2024-004474

PATIENT
  Age: 5 Year
  Weight: 15.8 kg

DRUGS (1)
  1. ELEVIDYS [Suspect]
     Active Substance: DELANDISTROGENE MOXEPARVOVEC-ROKL
     Indication: Product used for unknown indication
     Dosage: UNK UNK, SINGLE
     Route: 042
     Dates: start: 20231128, end: 20231128

REACTIONS (1)
  - Hypertonia [Unknown]

NARRATIVE: CASE EVENT DATE: 20240319
